FAERS Safety Report 6326932-5 (Version None)
Quarter: 2009Q3

REPORT INFORMATION
  Report Type: 
  Country: None (occurrence: None)
  Receive Date: 20090825
  Receipt Date: 20090820
  Transmission Date: 20100115
  Serious: Yes (Other)
  Sender: FDA-Public Use
  Company Number: GB-ABBOTT-09P-167-0592570-00

PATIENT
  Age: 30 Year
  Sex: Male

DRUGS (10)
  1. ZEMPLAR [Suspect]
     Indication: HYPERPARATHYROIDISM
     Dates: start: 20090701, end: 20090708
  2. OMEPRAZOLE [Concomitant]
     Indication: DRUG USE FOR UNKNOWN INDICATION
  3. SERTRALINE [Concomitant]
     Indication: DRUG USE FOR UNKNOWN INDICATION
  4. DOXAZOSIN [Concomitant]
     Indication: DRUG USE FOR UNKNOWN INDICATION
  5. FUROSEMIDE [Concomitant]
     Indication: DRUG USE FOR UNKNOWN INDICATION
  6. LABETALOL HCL [Concomitant]
     Indication: DRUG USE FOR UNKNOWN INDICATION
  7. LERCANIDIPINE [Concomitant]
     Indication: DRUG USE FOR UNKNOWN INDICATION
  8. PREDNISOLONE [Concomitant]
     Indication: DRUG USE FOR UNKNOWN INDICATION
  9. ALU-CAP [Concomitant]
     Indication: DRUG USE FOR UNKNOWN INDICATION
  10. EMLA [Concomitant]
     Indication: DRUG USE FOR UNKNOWN INDICATION

REACTIONS (3)
  - ARTHRALGIA [None]
  - CALCINOSIS [None]
  - PARATHYROIDECTOMY [None]
